FAERS Safety Report 25153069 (Version 1)
Quarter: 2025Q2

REPORT INFORMATION
  Report Type: Spontaneous
  Country: ES (occurrence: ES)
  Receive Date: 20250403
  Receipt Date: 20250403
  Transmission Date: 20250716
  Serious: Yes (Death)
  Sender: CHEPLAPHARM
  Company Number: None

PATIENT
  Sex: Female

DRUGS (7)
  1. QUETIAPINE [Suspect]
     Active Substance: QUETIAPINE
     Dates: start: 20231201
  2. LATUDA [Suspect]
     Active Substance: LURASIDONE HYDROCHLORIDE
     Indication: Personality disorder
     Dosage: 28 TABLETS, DOSE NOT CHANGED?DAILY DOSE: 74 MILLIGRAM
     Route: 048
     Dates: start: 202310
  3. CLONIDINE [Concomitant]
     Active Substance: CLONIDINE
     Indication: Tourette^s disorder
     Dosage: 30 TABLETS. DOSE NOT CHANGED?DAILY DOSE: 1 DOSAGE FORM
     Route: 048
     Dates: start: 20240209
  4. CLONIDINE [Concomitant]
     Active Substance: CLONIDINE
     Indication: Tourette^s disorder
     Dosage: 0.5 DOSAGE FORM EVERY 8 HOURS?DAILY DOSE: 1.5 DOSAGE FORM
     Route: 048
  5. ESTRADIOL [Concomitant]
     Active Substance: ESTRADIOL
     Indication: Transgender hormonal therapy
     Dosage: 1.53 MG/DOSE TRANSDERMAL SPRAY SOLUTION, ONE 6.5 ML BOTTLE (56 SPRAYS), DOSE NOT CHANGED
     Route: 061
     Dates: start: 20240226
  6. RIVOTRIL [Concomitant]
     Active Substance: CLONAZEPAM
     Indication: Anxiety disorder
     Route: 048
     Dates: start: 20230811
  7. VENLAFAXINE HYDROCHLORIDE [Concomitant]
     Active Substance: VENLAFAXINE HYDROCHLORIDE
     Dosage: EXTENDED-RELEASE TABLETS, 30 TABLETS/DOSE NOT CHANGED?DAILY DOSE: 225 MILLIGRAM
     Route: 048
     Dates: start: 202310

REACTIONS (2)
  - Cardio-respiratory arrest [Fatal]
  - Epilepsy [Fatal]

NARRATIVE: CASE EVENT DATE: 20250312
